FAERS Safety Report 4509788-2 (Version None)
Quarter: 2004Q4

REPORT INFORMATION
  Report Type: 
  Country: None (occurrence: None)
  Receive Date: 20041124
  Receipt Date: 20040510
  Transmission Date: 20050328
  Serious: No
  Sender: FDA-Public Use
  Company Number: US-BRISTOL-MYERS SQUIBB COMPANY-12590790

PATIENT
  Sex: Male

DRUGS (4)
  1. AVALIDE [Suspect]
     Indication: HYPERTENSION
     Route: 048
     Dates: start: 20040501
  2. METHOTREXATE [Concomitant]
     Indication: IMMUNOSUPPRESSANT DRUG THERAPY
  3. DILTIAZEM HCL [Concomitant]
  4. WARFARIN [Concomitant]
     Indication: COAGULOPATHY

REACTIONS (1)
  - HYPOAESTHESIA [None]
